FAERS Safety Report 9316795 (Version 2)
Quarter: 2013Q2

REPORT INFORMATION
  Report Type: Spontaneous
  Country: US (occurrence: US)
  Receive Date: 20130530
  Receipt Date: 20130530
  Transmission Date: 20140414
  Serious: No
  Sender: FDA-Public Use
  Company Number: US-MYLANLABS-2013S1005773

PATIENT
  Age: 64 Year
  Sex: Female
  Weight: 76.66 kg

DRUGS (7)
  1. ZOLPIDEM TARTRATE TABLETS [Suspect]
     Indication: SLEEP DISORDER
     Route: 048
  2. LASIX [Concomitant]
     Indication: FLUID RETENTION
     Route: 048
  3. VERAMYST [Concomitant]
     Dosage: NASAL SPRAY USED TO PREVENT SINUS INFECTIONS
     Route: 045
  4. NORVASC [Concomitant]
     Indication: BLOOD PRESSURE INCREASED
     Route: 048
  5. OGEN [Concomitant]
     Indication: HORMONE REPLACEMENT THERAPY
     Dosage: TAKES 1/3 OF A TAB DAILY
     Route: 048
  6. ASPIRIN [Concomitant]
     Route: 048
  7. VITAMIN D [Concomitant]
     Indication: VITAMIN D DEFICIENCY
     Dosage: TAKEN EVERY OTHER SUNDAY.
     Route: 048

REACTIONS (4)
  - Drug ineffective [Not Recovered/Not Resolved]
  - Initial insomnia [Not Recovered/Not Resolved]
  - Fall [Recovered/Resolved]
  - Fatigue [Not Recovered/Not Resolved]
